FAERS Safety Report 5129656-5 (Version None)
Quarter: 2006Q4

REPORT INFORMATION
  Report Type: 
  Country: None (occurrence: None)
  Receive Date: 20061018
  Receipt Date: 20060324
  Transmission Date: 20070319
  Serious: Yes (Hospitalization)
  Sender: FDA-Public Use
  Company Number: US-GLAXOSMITHKLINE-A0598977A

PATIENT
  Age: 10 Year
  Sex: Female

DRUGS (5)
  1. ESKALITH [Suspect]
     Route: 048
     Dates: start: 20050801
  2. RISPERDAL [Concomitant]
  3. AVIANE-21 [Concomitant]
  4. ZYPREXA [Concomitant]
  5. TENEX [Concomitant]

REACTIONS (7)
  - CONVULSION [None]
  - DEHYDRATION [None]
  - HUNTINGTON'S CHOREA [None]
  - PYREXIA [None]
  - RASH [None]
  - VOMITING [None]
  - WEIGHT INCREASED [None]
